FAERS Safety Report 4538036-2 (Version None)
Quarter: 2004Q4

REPORT INFORMATION
  Report Type: 
  Country: None (occurrence: None)
  Receive Date: 20041223
  Receipt Date: 20041223
  Transmission Date: 20050328
  Serious: Yes (Life-Threatening)
  Sender: FDA-Public Use
  Company Number: None

PATIENT
  Sex: Female
  Weight: 104.3273 kg

DRUGS (3)
  1. VIOXX [Suspect]
     Indication: ARTHROPATHY
     Dosage: MAXIMUM X2 DAILY ORAL
     Route: 048
  2. VIOXX [Suspect]
     Indication: MOBILITY DECREASED
     Dosage: MAXIMUM X2 DAILY ORAL
     Route: 048
  3. VIOXX [Suspect]
     Indication: PAIN MANAGEMENT
     Dosage: MAXIMUM X2 DAILY ORAL
     Route: 048

REACTIONS (4)
  - CEREBROVASCULAR ACCIDENT [None]
  - DIPLOPIA [None]
  - DIZZINESS [None]
  - NAUSEA [None]
